FAERS Safety Report 12897892 (Version 1)
Quarter: 2016Q4

REPORT INFORMATION
  Report Type: Spontaneous
  Country: DE (occurrence: DE)
  Receive Date: 20161031
  Receipt Date: 20161031
  Transmission Date: 20170207
  Serious: Yes (Other)
  Sender: FDA-Public Use
  Company Number: DE-AMGEN-DEUSP2016147795

PATIENT
  Sex: Male
  Weight: 78 kg

DRUGS (1)
  1. NPLATE [Suspect]
     Active Substance: ROMIPLOSTIM
     Indication: IMMUNE THROMBOCYTOPENIC PURPURA
     Dosage: 500 MG, QWK
     Route: 058
     Dates: start: 20130514, end: 20160813

REACTIONS (1)
  - Immune thrombocytopenic purpura [Not Recovered/Not Resolved]
